FAERS Safety Report 9836614 (Version 1)
Quarter: 2013Q4

REPORT INFORMATION
  Report Type: Spontaneous
  Country: US (occurrence: None)
  Receive Date: 20131121
  Receipt Date: 20131121
  Transmission Date: 20140711
  Serious: Yes (Other)
  Sender: FDA-Public Use
  Company Number: 1000047419

PATIENT
  Age: 87 Year
  Sex: Male

DRUGS (4)
  1. TUDORZA PRESSAIR [Suspect]
     Indication: RHINITIS
     Dosage: 800 MCG (400 MCG, 2 IN 1 D), ORAL
     Route: 048
     Dates: start: 20130604
  2. POTASSIUM (POTASSIUM) (POTASSIUM) [Concomitant]
  3. FUROSEMIDE (FUROSEMIDE) (FUROSEMIDE) [Concomitant]
  4. XARELTO (RIVAROXABAN) (ROVAROXABAN) [Concomitant]

REACTIONS (2)
  - Abdominal pain upper [None]
  - Off label use [None]
